FAERS Safety Report 7422897-3 (Version None)
Quarter: 2011Q2

REPORT INFORMATION
  Report Type: 
  Country: None (occurrence: None)
  Receive Date: 20110419
  Receipt Date: 20110415
  Transmission Date: 20111010
  Serious: Yes (Life-Threatening)
  Sender: FDA-Public Use
  Company Number: JP-B.I. PHARMACEUTICALS,INC./RIDGEFIELD-2011-BP-10791NB

PATIENT
  Age: 85 Year
  Sex: Female

DRUGS (7)
  1. LANSOPRAZOLE [Concomitant]
     Route: 065
  2. PRORENAL [Concomitant]
     Route: 065
  3. ARTIST [Concomitant]
     Route: 065
  4. LASIX [Concomitant]
     Route: 065
  5. PRAZAXA [Suspect]
     Indication: ATRIAL FIBRILLATION
     Dosage: 220 MG
     Route: 048
     Dates: start: 20110407, end: 20110415
  6. ALDACTONE [Concomitant]
     Route: 065
  7. ARICEPT [Concomitant]
     Route: 065

REACTIONS (1)
  - WHITE BLOOD CELL COUNT DECREASED [None]
